FAERS Safety Report 8362350-6 (Version None)
Quarter: 2012Q2

REPORT INFORMATION
  Report Type: 
  Country: None (occurrence: None)
  Receive Date: 20120516
  Receipt Date: 20120510
  Transmission Date: 20120825
  Serious: Yes (Hospitalization)
  Sender: FDA-Public Use
  Company Number: NL-BIOGENIDEC-2012BI014133

PATIENT
  Age: 49 Year
  Sex: Male

DRUGS (4)
  1. TIZANIDINE HCL [Concomitant]
  2. TYSABRI [Suspect]
     Indication: RELAPSING-REMITTING MULTIPLE SCLEROSIS
     Route: 042
     Dates: start: 20120229
  3. NIFEDIPINE [Concomitant]
  4. BACLOFEN [Concomitant]

REACTIONS (1)
  - CEREBROVASCULAR ACCIDENT [None]
